FAERS Safety Report 8539660-2 (Version None)
Quarter: 2012Q3

REPORT INFORMATION
  Report Type: 
  Country: None (occurrence: None)
  Receive Date: 20120726
  Receipt Date: 20110720
  Transmission Date: 20120928
  Serious: No
  Sender: FDA-Public Use
  Company Number: US-ASTRAZENECA-2008UW01683

PATIENT
  Age: 600 Month
  Sex: Male
  Weight: 108.9 kg

DRUGS (15)
  1. SEROQUEL [Suspect]
     Dosage: 200 MG - 600 MG
     Route: 048
     Dates: start: 20040707
  2. TRAZODONE HCL [Concomitant]
     Route: 065
     Dates: start: 20040701
  3. RITALIN [Concomitant]
     Route: 048
  4. GLUCOTROL [Concomitant]
     Route: 065
  5. ABILIFY [Concomitant]
     Route: 048
  6. RISPERDAL [Concomitant]
     Route: 048
     Dates: start: 20040701
  7. TRILAFON [Concomitant]
     Route: 065
  8. HYDROXYZINE HYDROCHLORIDE [Concomitant]
     Route: 048
  9. PROZAC [Concomitant]
     Route: 048
     Dates: start: 20040701
  10. PROZAC [Concomitant]
     Route: 048
  11. PAXIL [Concomitant]
     Route: 048
  12. SEROQUEL [Suspect]
     Indication: SCHIZOPHRENIA
     Dosage: 200MG, 300MG AND 600MG
     Route: 048
     Dates: start: 19950101
  13. GLUCOPHAGE [Concomitant]
     Route: 065
  14. ZYPREXA [Concomitant]
     Route: 048
  15. TRAZODONE HCL [Concomitant]
     Route: 048

REACTIONS (3)
  - HYPERTENSION [None]
  - TYPE 2 DIABETES MELLITUS [None]
  - VISION BLURRED [None]
